FAERS Safety Report 11126399 (Version 2)
Quarter: 2015Q2

REPORT INFORMATION
  Report Type: Spontaneous
  Country: US (occurrence: US)
  Receive Date: 20150520
  Receipt Date: 20150610
  Transmission Date: 20150821
  Serious: Yes (Hospitalization)
  Sender: FDA-Public Use
  Company Number: US-UNITED THERAPEUTICS-UNT-2015-005792

PATIENT
  Age: 59 Year
  Sex: Female
  Weight: 89.98 kg

DRUGS (2)
  1. REMODULIN [Suspect]
     Active Substance: TREPROSTINIL
     Dosage: 0.00775 ?G/KG, CONTINUING
     Route: 041
  2. REMODULIN [Suspect]
     Active Substance: TREPROSTINIL
     Indication: PULMONARY HYPERTENSION
     Dosage: 0.00775 ?G/KG, CONTINUING
     Route: 041
     Dates: start: 20150408

REACTIONS (1)
  - Fluid retention [Unknown]

NARRATIVE: CASE EVENT DATE: 201505
